FAERS Safety Report 17824342 (Version 1)
Quarter: 2020Q2

REPORT INFORMATION
  Report Type: Spontaneous
  Country: ES (occurrence: ES)
  Receive Date: 20200526
  Receipt Date: 20200526
  Transmission Date: 20200714
  Serious: Yes (Hospitalization, Other)
  Sender: FDA-Public Use
  Company Number: ES-PFIZER INC-2020206146

PATIENT
  Age: 73 Year
  Sex: Male

DRUGS (2)
  1. METHYLPREDNISOLONE SODIUM SUCCINATE. [Suspect]
     Active Substance: METHYLPREDNISOLONE SODIUM SUCCINATE
     Dosage: UNK
  2. EVEROLIMUS. [Suspect]
     Active Substance: EVEROLIMUS
     Dosage: UNK

REACTIONS (2)
  - COVID-19 [Unknown]
  - Pneumonia [Unknown]
